FAERS Safety Report 5373263-6 (Version None)
Quarter: 2007Q2

REPORT INFORMATION
  Report Type: 
  Country: None (occurrence: None)
  Receive Date: 20070626
  Receipt Date: 20070626
  Transmission Date: 20071010
  Serious: Yes (Other)
  Sender: FDA-Public Use
  Company Number: None

PATIENT
  Age: 51 Year
  Sex: Female
  Weight: 112.0385 kg

DRUGS (7)
  1. CETUXIMAB [Suspect]
     Indication: BREAST CANCER METASTATIC
     Dosage: 550 MG WEEKLY IV
     Route: 042
     Dates: start: 20070312
  2. CETUXIMAB [Suspect]
     Indication: BREAST CANCER METASTATIC
     Dosage: 550 MG WEEKLY IV
     Route: 042
     Dates: start: 20070319
  3. CETUXIMAB [Suspect]
     Indication: BREAST CANCER METASTATIC
     Dosage: 550 MG WEEKLY IV
     Route: 042
     Dates: start: 20070326
  4. CETUXIMAB [Suspect]
     Indication: BREAST CANCER METASTATIC
     Dosage: 550 MG WEEKLY IV
     Route: 042
     Dates: start: 20070402
  5. CETUXIMAB [Suspect]
     Indication: BREAST CANCER METASTATIC
     Dosage: 550 MG WEEKLY IV
     Route: 042
     Dates: start: 20070409
  6. DURAGESIC-100 [Concomitant]
  7. MORPHINE [Concomitant]

REACTIONS (6)
  - ABDOMINAL PAIN [None]
  - ABNORMAL BEHAVIOUR [None]
  - CHROMATOPSIA [None]
  - DIZZINESS [None]
  - LOSS OF CONSCIOUSNESS [None]
  - NERVOUS SYSTEM DISORDER [None]
